FAERS Safety Report 17139850 (Version 2)
Quarter: 2025Q3

REPORT INFORMATION
  Report Type: Spontaneous
  Country: EU (occurrence: EU)
  Receive Date: 20191211
  Receipt Date: 20250709
  Transmission Date: 20251021
  Serious: Yes (Life-Threatening, Hospitalization, Other)
  Sender: AUROBINDO
  Company Number: EU-HOLSTEN-HOL-CIT-19_003

PATIENT
  Age: 72 Year
  Sex: Female

DRUGS (6)
  1. CITALOPRAM [Interacting]
     Active Substance: CITALOPRAM
     Indication: Product used for unknown indication
     Route: 065
  2. BISOPROLOL [Interacting]
     Active Substance: BISOPROLOL
     Indication: Product used for unknown indication
     Route: 065
  3. PANTOPRAZOLE [Suspect]
     Active Substance: PANTOPRAZOLE
     Indication: Product used for unknown indication
     Route: 065
  4. METHOTREXATE [Interacting]
     Active Substance: METHOTREXATE
     Indication: Rheumatoid arthritis
     Route: 065
  5. TELMISARTAN [Interacting]
     Active Substance: TELMISARTAN
     Indication: Hypertension
     Route: 065
  6. FOLIC ACID [Interacting]
     Active Substance: FOLIC ACID
     Indication: Rheumatoid arthritis
     Route: 065

REACTIONS (1)
  - Haemophilia [Recovered/Resolved]
